FAERS Safety Report 23029586 (Version 3)
Quarter: 2023Q4

REPORT INFORMATION
  Report Type: Spontaneous
  Country: RS (occurrence: RS)
  Receive Date: 20231004
  Receipt Date: 20231122
  Transmission Date: 20240109
  Serious: Yes (Death, Hospitalization)
  Sender: FDA-Public Use
  Company Number: RS-BIOGEN-2023BI01228604

PATIENT
  Age: 8 Year
  Sex: Female

DRUGS (2)
  1. SPINRAZA [Suspect]
     Active Substance: NUSINERSEN
     Indication: Spinal muscular atrophy
     Route: 050
     Dates: start: 202006, end: 20230602
  2. SPINRAZA [Suspect]
     Active Substance: NUSINERSEN
     Dosage: MOST RECENT ADMINISTRATION
     Route: 050

REACTIONS (1)
  - Infection [Fatal]

NARRATIVE: CASE EVENT DATE: 20230601
